FAERS Safety Report 9907610 (Version 3)
Quarter: 2014Q2

REPORT INFORMATION
  Report Type: Spontaneous
  Country: CO (occurrence: CO)
  Receive Date: 20140219
  Receipt Date: 20140617
  Transmission Date: 20141212
  Serious: Yes (Hospitalization, Other)
  Sender: FDA-Public Use
  Company Number: CO-AMGEN-COLSP2013066294

PATIENT
  Age: 15 Year
  Sex: Male

DRUGS (6)
  1. ENBREL [Suspect]
     Indication: JUVENILE IDIOPATHIC ARTHRITIS
     Dosage: 25 MG, WEEKLY
     Route: 058
     Dates: start: 20130728, end: 201401
  2. ENBREL [Suspect]
     Dosage: 50 MG, WEEKLY
     Route: 058
     Dates: start: 201311, end: 201401
  3. CHLOROQUINE [Concomitant]
     Indication: JUVENILE IDIOPATHIC ARTHRITIS
     Dosage: 250 MG, ONCE A DAY
     Route: 048
     Dates: start: 201211
  4. PREDNISOLON                        /00016201/ [Concomitant]
     Indication: JUVENILE IDIOPATHIC ARTHRITIS
     Dosage: 20 MG, ONCE A D AY
     Route: 048
     Dates: start: 201211
  5. LEFLUNOMIDE [Concomitant]
     Indication: JUVENILE IDIOPATHIC ARTHRITIS
     Dosage: 20 MG, ONCE A DAY
     Route: 048
     Dates: start: 201302
  6. PREDNISOLON                        /00016201/ [Concomitant]
     Indication: JUVENILE IDIOPATHIC ARTHRITIS
     Dosage: 20 MG, ONCE A DAY
     Route: 048
     Dates: start: 20130728

REACTIONS (8)
  - Cough [Unknown]
  - Red blood cell sedimentation rate increased [Unknown]
  - Activated protein C resistance test positive [Unknown]
  - Epistaxis [Recovered/Resolved]
  - Pyrexia [Recovering/Resolving]
  - Nasal congestion [Recovering/Resolving]
  - Drug ineffective [Unknown]
  - Influenza [Recovered/Resolved]
